FAERS Safety Report 12137558 (Version 3)
Quarter: 2016Q1

REPORT INFORMATION
  Report Type: Report from Study
  Country: US (occurrence: US)
  Receive Date: 20160302
  Receipt Date: 20160328
  Transmission Date: 20160526
  Serious: Yes (Hospitalization, Other)
  Sender: FDA-Public Use
  Company Number: US-GILEAD-2016-0201433

PATIENT
  Age: 44 Year
  Sex: Female
  Weight: 141.4 kg

DRUGS (9)
  1. AMBRISENTAN [Suspect]
     Active Substance: AMBRISENTAN
     Indication: PRODUCT USED FOR UNKNOWN INDICATION
     Dosage: 5 MG, QD
     Route: 065
     Dates: start: 20150617
  2. SINGULAIR [Concomitant]
     Active Substance: MONTELUKAST SODIUM
  3. TIZANIDINE. [Concomitant]
     Active Substance: TIZANIDINE
  4. LISINOPRIL. [Concomitant]
     Active Substance: LISINOPRIL
  5. SERTRALINE [Concomitant]
     Active Substance: SERTRALINE HYDROCHLORIDE
  6. AMLODIPINE [Concomitant]
     Active Substance: AMLODIPINE BESYLATE
  7. OXYCODONE [Concomitant]
     Active Substance: OXYCODONE
  8. FENTANYL. [Concomitant]
     Active Substance: FENTANYL
  9. GABAPENTIN. [Concomitant]
     Active Substance: GABAPENTIN

REACTIONS (3)
  - Influenza [Recovered/Resolved]
  - Pneumonia [Recovered/Resolved]
  - Respiratory failure [Recovered/Resolved]

NARRATIVE: CASE EVENT DATE: 20160210
